FAERS Safety Report 10228662 (Version 1)
Quarter: 2014Q2

REPORT INFORMATION
  Report Type: Spontaneous
  Country: US (occurrence: US)
  Receive Date: 20140610
  Receipt Date: 20140610
  Transmission Date: 20141212
  Serious: No
  Sender: FDA-Public Use
  Company Number: US-B.I. PHARMACEUTICALS,INC./RIDGEFIELD-2014-BI-24328BP

PATIENT
  Age: 74 Year
  Sex: Male

DRUGS (13)
  1. SPIRIVA [Suspect]
     Indication: CHRONIC OBSTRUCTIVE PULMONARY DISEASE
     Dosage: 18 MCG
     Route: 055
     Dates: start: 20140527, end: 20140531
  2. SIMVASTATIN [Concomitant]
     Indication: BLOOD CHOLESTEROL INCREASED
     Dosage: 40 MG
     Route: 065
  3. FUROSEMIDE [Concomitant]
     Indication: LOCAL SWELLING
     Dosage: 20 MG
     Route: 065
  4. FUROSEMIDE [Concomitant]
     Indication: JOINT SWELLING
  5. GLYBURIDE [Concomitant]
     Indication: TYPE 2 DIABETES MELLITUS
     Dosage: 5 MG
     Route: 065
  6. METFORMIN [Concomitant]
     Indication: TYPE 2 DIABETES MELLITUS
     Dosage: 1000 MG
     Route: 065
  7. METOZONE [Concomitant]
     Indication: HYPERTENSION
     Dosage: 5 MG
     Route: 065
  8. METOPROLOL SUCCINATE [Concomitant]
     Indication: HYPERTENSION
     Route: 065
  9. RENVELA [Concomitant]
     Indication: RENAL DISORDER
     Dosage: 800 MG
     Route: 065
  10. PRAMIPEXOLE [Concomitant]
     Indication: RESTLESS LEGS SYNDROME
     Dosage: 0.5 MG
     Route: 065
  11. ZOLPIDEM [Concomitant]
     Indication: INSOMNIA
     Dosage: 10 MG
     Route: 065
  12. TAMSULOSIN [Concomitant]
     Indication: PROSTATE CANCER
     Dosage: 0.8 MG
     Route: 065
  13. TAMSULOSIN [Concomitant]
     Indication: DIURETIC THERAPY

REACTIONS (4)
  - Rash [Not Recovered/Not Resolved]
  - Feeling hot [Unknown]
  - Drug ineffective [Unknown]
  - Rash [Not Recovered/Not Resolved]
